FAERS Safety Report 4733055-5 (Version None)
Quarter: 2005Q3

REPORT INFORMATION
  Report Type: 
  Country: None (occurrence: None)
  Receive Date: 20050801
  Receipt Date: 20050801
  Transmission Date: 20060218
  Serious: Yes (Death)
  Sender: FDA-Public Use
  Company Number: None

PATIENT
  Age: 12 Year
  Sex: Male
  Weight: 58.0604 kg

DRUGS (1)
  1. ZOLOFT [Suspect]
     Dosage: 75 MG PER DAY ORAL
     Route: 048
     Dates: start: 20030912, end: 20050302

REACTIONS (2)
  - COMPLETED SUICIDE [None]
  - GUN SHOT WOUND [None]
